FAERS Safety Report 7798047-0 (Version None)
Quarter: 2011Q4

REPORT INFORMATION
  Report Type: 
  Country: None (occurrence: None)
  Receive Date: 20111005
  Receipt Date: 20110928
  Transmission Date: 20120403
  Serious: Yes (Other)
  Sender: FDA-Public Use
  Company Number: US-BAXTER-2011BH030693

PATIENT
  Age: 68 Year
  Sex: Female

DRUGS (2)
  1. LIDOCAINE AND EPINEPHRINE [Suspect]
     Indication: LOCAL ANAESTHESIA
     Route: 031
  2. BUPIVACAINE HCL [Suspect]
     Indication: LOCAL ANAESTHESIA
     Route: 031

REACTIONS (11)
  - IATROGENIC INJURY [None]
  - CORNEAL OEDEMA [None]
  - ANGLE CLOSURE GLAUCOMA [None]
  - EYE PENETRATION [None]
  - CORNEAL OPACITY [None]
  - CORNEAL DISORDER [None]
  - CORNEAL THICKENING [None]
  - INCORRECT ROUTE OF DRUG ADMINISTRATION [None]
  - CORNEAL PIGMENTATION [None]
  - IRIS DISORDER [None]
  - IRIS ADHESIONS [None]
